FAERS Safety Report 8411774 (Version 9)
Quarter: 2012Q4

REPORT INFORMATION
  Report Type: 
  Country: US (occurrence: US)
  Receive Date: 20120217
  Receipt Date: 20121015
  Transmission Date: 20130627
  Serious: Yes (Hospitalization, Other)
  Sender: FDA-Public Use
  Company Number: US-009507513-1202USA02454

PATIENT

DRUGS (7)
  1. FOSAMAX [Suspect]
     Indication: OSTEOPOROSIS
     Dosage: 10 mg, qd
     Route: 048
     Dates: start: 2001, end: 2008
  2. CALCIUM ACETATE [Concomitant]
     Dosage: 667 mg, bid
     Route: 048
  3. ZYRTEC [Concomitant]
     Dosage: 5 mg, qd
     Route: 048
  4. PREMARIN [Concomitant]
     Indication: HORMONE REPLACEMENT THERAPY
     Dosage: 0.625 mg, qd
     Route: 048
     Dates: start: 1987, end: 20030801
  5. IMIPRAMINE HYDROCHLORIDE [Concomitant]
     Dosage: 20 mg, qd
     Route: 048
  6. MK-9278 [Concomitant]
     Dosage: UNK UNK, qd
     Route: 048
  7. LOVENOX [Concomitant]
     Indication: THROMBOSIS PROPHYLAXIS
     Dosage: for 20 days
     Route: 058

REACTIONS (35)
  - Fracture nonunion [Recovered/Resolved]
  - Femur fracture [Recovered/Resolved]
  - Open reduction of fracture [Unknown]
  - Hypokalaemia [Unknown]
  - Renal failure chronic [Unknown]
  - Uterine disorder [Unknown]
  - Haematoma [Unknown]
  - Device failure [Unknown]
  - Fall [Unknown]
  - Anaemia [Unknown]
  - Low turnover osteopathy [Unknown]
  - Depression [Unknown]
  - Anxiety [Unknown]
  - Hyperlipidaemia [Unknown]
  - Osteoarthritis [Unknown]
  - Chronic sinusitis [Unknown]
  - Cholelithiasis [Unknown]
  - Intervertebral disc degeneration [Unknown]
  - Urge incontinence [Unknown]
  - Bursitis [Unknown]
  - Incontinence [Unknown]
  - Hypertonic bladder [Unknown]
  - Vitamin D deficiency [Unknown]
  - Rhinitis [Unknown]
  - Pain [Unknown]
  - Visual impairment [Unknown]
  - Arthropathy [Not Recovered/Not Resolved]
  - Cystitis [Unknown]
  - Seasonal allergy [Unknown]
  - Calcium deficiency [Unknown]
  - Insomnia [Unknown]
  - Drug ineffective [Unknown]
  - Fatigue [Unknown]
  - Bronchitis [Unknown]
  - Rhinitis allergic [Unknown]
